FAERS Safety Report 11365503 (Version 2)
Quarter: 2015Q3

REPORT INFORMATION
  Report Type: Spontaneous
  Country: FR (occurrence: FR)
  Receive Date: 20150811
  Receipt Date: 20150930
  Transmission Date: 20151125
  Serious: Yes (Hospitalization, Other)
  Sender: FDA-Public Use
  Company Number: FR-PFIZER INC-2015261152

PATIENT
  Age: 71 Year
  Sex: Male

DRUGS (11)
  1. LASILIX [Concomitant]
     Active Substance: FUROSEMIDE
     Dosage: UNK
  2. CRESTOR [Concomitant]
     Active Substance: ROSUVASTATIN CALCIUM
     Dosage: UNK
  3. DUOPLAVIN [Concomitant]
     Active Substance: ASPIRIN\CLOPIDOGREL
     Dosage: UNK
  4. TRIATEC [Concomitant]
     Active Substance: RAMIPRIL
     Dosage: UNK
  5. ISOPHANE INSULIN [Concomitant]
     Active Substance: INSULIN NOS
     Dosage: UNK
     Dates: end: 201503
  6. NORSET [Suspect]
     Active Substance: MIRTAZAPINE
     Indication: ANXIETY
     Dosage: 2 DF, 1X/DAY
     Route: 048
     Dates: start: 20150309, end: 20150311
  7. XANAX [Suspect]
     Active Substance: ALPRAZOLAM
     Indication: ANXIETY
     Dosage: 0.25 MG, 2 DOSAGE FORMS DAILY
     Route: 048
     Dates: start: 20150308, end: 201503
  8. XANAX [Suspect]
     Active Substance: ALPRAZOLAM
     Dosage: 0.25 MG DOSE ESCALATION TO 8 DOSAGE FORMS (DFS) DAILY
     Route: 048
     Dates: start: 201503, end: 20150311
  9. NOVORAPID [Concomitant]
     Active Substance: INSULIN ASPART
     Dosage: UNK
     Dates: end: 201503
  10. PREVISCAN [Concomitant]
     Active Substance: FLUINDIONE
     Dosage: UNK
  11. STILNOX [Suspect]
     Active Substance: ZOLPIDEM TARTRATE
     Indication: SLEEP DISORDER
     Dosage: 1 DF, DAILY
     Route: 048
     Dates: start: 20150308, end: 20150311

REACTIONS (8)
  - Coma [Recovered/Resolved]
  - Blood glucose increased [Unknown]
  - Acute respiratory failure [Recovered/Resolved]
  - Disturbance in attention [Unknown]
  - Hypophagia [Unknown]
  - Aortic valve incompetence [Unknown]
  - Drug ineffective [Unknown]
  - Somnolence [Unknown]

NARRATIVE: CASE EVENT DATE: 2015
